FAERS Safety Report 8844963 (Version 1)
Quarter: 2012Q4

REPORT INFORMATION
  Report Type: 
  Country: US (occurrence: US)
  Receive Date: 20121017
  Receipt Date: 20121017
  Transmission Date: 20130627
  Serious: No
  Sender: FDA-Public Use
  Company Number: US-ROXANE LABORATORIES, INC.-2012-RO-01974RO

PATIENT
  Sex: Female

DRUGS (1)
  1. EXEMESTANE [Suspect]

REACTIONS (3)
  - Abdominal pain upper [Unknown]
  - Hot flush [Unknown]
  - Rash macular [Unknown]
